APPROVED DRUG PRODUCT: CLOBETASOL PROPIONATE
Active Ingredient: CLOBETASOL PROPIONATE
Strength: 0.05%
Dosage Form/Route: SPRAY;TOPICAL
Application: A214345 | Product #001
Applicant: MACLEODS PHARMACEUTICALS LTD
Approved: Dec 2, 2024 | RLD: No | RS: No | Type: DISCN